FAERS Safety Report 9579915 (Version 1)
Quarter: 2013Q3

REPORT INFORMATION
  Report Type: Spontaneous
  Country: US (occurrence: None)
  Receive Date: 20130930
  Receipt Date: 20130930
  Transmission Date: 20140515
  Serious: Yes (Disabling)
  Sender: FDA-Public Use
  Company Number: None

PATIENT
  Age: 44 Year
  Sex: Female
  Weight: 84.82 kg

DRUGS (3)
  1. GABAPENTIN [Suspect]
     Indication: NEURALGIA
     Dosage: 1 PILL
     Route: 048
     Dates: start: 20130226, end: 20130830
  2. GABAPENTIN [Suspect]
     Indication: SCIATICA
     Dosage: 1 PILL
     Route: 048
     Dates: start: 20130226, end: 20130830
  3. GABAPENTIN [Suspect]
     Indication: INTERVERTEBRAL DISC PROTRUSION
     Dosage: 1 PILL
     Route: 048
     Dates: start: 20130226, end: 20130830

REACTIONS (10)
  - Walking aid user [None]
  - Mood altered [None]
  - Activities of daily living impaired [None]
  - Pain [None]
  - Dysstasia [None]
  - Abasia [None]
  - Malaise [None]
  - Nasopharyngitis [None]
  - Vomiting [None]
  - Dysuria [None]
